FAERS Safety Report 5588874-2 (Version None)
Quarter: 2008Q1

REPORT INFORMATION
  Report Type: 
  Country: None (occurrence: None)
  Receive Date: 20080111
  Receipt Date: 20080102
  Transmission Date: 20080703
  Serious: Yes (Death)
  Sender: FDA-Public Use
  Company Number: GB-RANBAXY-2008RR-12337

PATIENT

DRUGS (3)
  1. RISPERIDONE [Suspect]
     Indication: EPILEPSY
     Dosage: 4.5 MG, QD
     Route: 048
  2. RISPERIDONE [Suspect]
     Indication: LEARNING DISABILITY
  3. RISPERIDONE [Suspect]
     Indication: SCHIZOPHRENIA

REACTIONS (2)
  - MALAISE [None]
  - RHABDOMYOLYSIS [None]
